FAERS Safety Report 18691610 (Version 4)
Quarter: 2021Q1

REPORT INFORMATION
  Report Type: Spontaneous
  Country: AU (occurrence: AU)
  Receive Date: 20210101
  Receipt Date: 20210323
  Transmission Date: 20210419
  Serious: Yes (Hospitalization, Other)
  Sender: FDA-Public Use
  Company Number: AU-MYLANLABS-2020M1105697

PATIENT
  Age: 43 Year
  Sex: Female

DRUGS (5)
  1. CLOZARIL [Suspect]
     Active Substance: CLOZAPINE
     Dosage: 300 MILLIGRAM, QD
     Dates: start: 202101
  2. CLOZARIL [Suspect]
     Active Substance: CLOZAPINE
     Indication: SCHIZOPHRENIA
     Dosage: 300 MILLIGRAM
     Route: 048
     Dates: start: 20201127, end: 20201213
  3. CLOZARIL [Suspect]
     Active Substance: CLOZAPINE
     Dosage: 75 MILLIGRAM
     Route: 048
     Dates: start: 20201127
  4. CLOZARIL [Suspect]
     Active Substance: CLOZAPINE
     Dosage: UNK
     Dates: start: 202012
  5. CLOZARIL [Suspect]
     Active Substance: CLOZAPINE
     Dosage: UNK
     Dates: start: 20201223

REACTIONS (11)
  - Pneumonia [Recovering/Resolving]
  - C-reactive protein increased [Not Recovered/Not Resolved]
  - Eosinophil count increased [Recovering/Resolving]
  - White blood cell count increased [Recovering/Resolving]
  - Chest pain [Recovering/Resolving]
  - Red cell distribution width decreased [Recovering/Resolving]
  - Neutrophil count increased [Recovering/Resolving]
  - Myocarditis [Unknown]
  - Basophil count increased [Recovering/Resolving]
  - Lymphocyte count decreased [Unknown]
  - Troponin T increased [Recovering/Resolving]

NARRATIVE: CASE EVENT DATE: 20201213
